FAERS Safety Report 23475822 (Version 1)
Quarter: 2024Q1

REPORT INFORMATION
  Report Type: Report from Study
  Country: US (occurrence: US)
  Receive Date: 20240204
  Receipt Date: 20240204
  Transmission Date: 20240410
  Serious: No
  Sender: FDA-Public Use
  Company Number: US-EXELIXIS-CABO-23061065

PATIENT
  Sex: Female

DRUGS (18)
  1. CABOMETYX [Suspect]
     Active Substance: CABOZANTINIB S-MALATE
     Indication: Renal cancer
     Dosage: 40 MG, QD
     Route: 048
     Dates: start: 20210625
  2. OPDIVO [Concomitant]
     Active Substance: NIVOLUMAB
  3. ACETAMINOPHEN [Concomitant]
     Active Substance: ACETAMINOPHEN
  4. ADDERALL [Concomitant]
     Active Substance: AMPHETAMINE ASPARTATE\AMPHETAMINE SULFATE\DEXTROAMPHETAMINE SACCHARATE\DEXTROAMPHETAMINE SULFATE
  5. ENOXAPARIN [Concomitant]
     Active Substance: ENOXAPARIN
  6. EVEROLIMUS [Concomitant]
     Active Substance: EVEROLIMUS
  7. FAMOTIDINE [Concomitant]
     Active Substance: FAMOTIDINE
  8. HYDROMORPHONE [Concomitant]
     Active Substance: HYDROMORPHONE
  9. LENVIMA [Concomitant]
     Active Substance: LENVATINIB
  10. MIRALAX [Concomitant]
     Active Substance: POLYETHYLENE GLYCOL 3350
  11. MORPHINE [Concomitant]
     Active Substance: MORPHINE
  12. MOVANTIK [Concomitant]
     Active Substance: NALOXEGOL OXALATE
  13. PANTOPRAZOLE [Concomitant]
     Active Substance: PANTOPRAZOLE
  14. PAROXETINE [Concomitant]
     Active Substance: PAROXETINE
  15. SENNA [Concomitant]
     Active Substance: SENNA LEAF\SENNOSIDES\SENNOSIDES A AND B
  16. SUTAB [Concomitant]
     Active Substance: MAGNESIUM SULFATE\POTASSIUM CHLORIDE\SODIUM SULFATE
  17. VITAMIN C [Concomitant]
     Active Substance: ASCORBIC ACID
  18. ZOFRAN [Concomitant]
     Active Substance: ONDANSETRON HYDROCHLORIDE

REACTIONS (5)
  - Initial insomnia [Unknown]
  - Cyst [Unknown]
  - Taste disorder [Unknown]
  - Fatigue [Unknown]
  - Vomiting [Unknown]
